FAERS Safety Report 24942464 (Version 1)
Quarter: 2025Q1

REPORT INFORMATION
  Report Type: Spontaneous
  Country: US (occurrence: US)
  Receive Date: 20250207
  Receipt Date: 20250207
  Transmission Date: 20250408
  Serious: No
  Sender: Day One Biopharmaceuticals
  Company Number: US-Day One Biopharmaceuticals Inc.-2025US000142

PATIENT

DRUGS (2)
  1. OJEMDA [Suspect]
     Active Substance: TOVORAFENIB
     Indication: Spinal cord neoplasm
     Dosage: 600 MILLIGRAM, QW
     Route: 048
     Dates: start: 20250124
  2. IUD NOS [Concomitant]
     Active Substance: COPPER OR LEVONORGESTREL
     Indication: Product used for unknown indication

REACTIONS (1)
  - Dizziness [Unknown]

NARRATIVE: CASE EVENT DATE: 20250101
